FAERS Safety Report 9090203 (Version 1)
Quarter: 2013Q1

REPORT INFORMATION
  Report Type: Spontaneous
  Country: JP (occurrence: JP)
  Receive Date: 20130131
  Receipt Date: 20130131
  Transmission Date: 20140127
  Serious: Yes (Hospitalization)
  Sender: FDA-Public Use
  Company Number: JP-BAYER-2013-006311

PATIENT
  Age: 74 Year
  Sex: Male

DRUGS (1)
  1. BAYASPIRIN [Suspect]
     Route: 048

REACTIONS (2)
  - Gastrointestinal telangiectasia [Recovered/Resolved]
  - Small intestinal haemorrhage [Recovered/Resolved]
